FAERS Safety Report 7027130-2 (Version None)
Quarter: 2010Q4

REPORT INFORMATION
  Report Type: 
  Country: None (occurrence: None)
  Receive Date: 20101004
  Receipt Date: 20100923
  Transmission Date: 20110411
  Serious: Yes (Other)
  Sender: FDA-Public Use
  Company Number: US-US-EMD SERONO, INC.-230267M09USA

PATIENT
  Sex: Female
  Weight: 82 kg

DRUGS (4)
  1. REBIF [Suspect]
     Indication: MULTIPLE SCLEROSIS
     Route: 058
     Dates: start: 20081113, end: 20081207
  2. NAPRELAN [Concomitant]
     Indication: INFLUENZA LIKE ILLNESS
     Route: 065
  3. ULTRAM [Concomitant]
     Indication: PAIN
     Route: 065
  4. KLONOPIN [Concomitant]
     Indication: MUSCLE SPASTICITY
     Route: 065

REACTIONS (2)
  - DEPRESSION [None]
  - SUICIDE ATTEMPT [None]
